FAERS Safety Report 7742022-9 (Version None)
Quarter: 2011Q3

REPORT INFORMATION
  Report Type: 
  Country: None (occurrence: None)
  Receive Date: 20110817
  Receipt Date: 20110504
  Transmission Date: 20111222
  Serious: Yes (Hospitalization, Other)
  Sender: FDA-Public Use
  Company Number: 201110306

PATIENT
  Age: 7 Year
  Sex: Male

DRUGS (3)
  1. ATIVAN [Concomitant]
  2. PHENOBARB [Concomitant]
  3. LIORESAL [Suspect]
     Indication: MUSCLE SPASTICITY
     Dosage: SEE B5 MCG, DAILY, INTRATHECAL
     Route: 037

REACTIONS (5)
  - EMERGENCY CARE [None]
  - INTENSIVE CARE [None]
  - UNRESPONSIVE TO STIMULI [None]
  - HOSPITALISATION [None]
  - OVERDOSE [None]
